FAERS Safety Report 7713565-9 (Version None)
Quarter: 2011Q3

REPORT INFORMATION
  Report Type: 
  Country: None (occurrence: None)
  Receive Date: 20110822
  Receipt Date: 20110810
  Transmission Date: 20111222
  Serious: Yes (Other)
  Sender: FDA-Public Use
  Company Number: USA/USA/11/0020727

PATIENT
  Age: 82 Year
  Sex: Male

DRUGS (4)
  1. ATROVASTATIN(ATORVASTATIN) [Suspect]
     Indication: PRODUCT USED FOR UNKNOWN INDICATION
     Dates: start: 19960101, end: 20030101
  2. SIMVASTATIN [Suspect]
     Indication: C-REACTIVE PROTEIN ABNORMAL
     Dosage: 5 MG, 1 IN 1 D
     Dates: start: 20090801
  3. SIMVASTATIN [Suspect]
     Indication: LOW DENSITY LIPOPROTEIN ABNORMAL
     Dosage: 5 MG, 1 IN 1 D
     Dates: start: 20090801
  4. SIMVASTATIN [Suspect]
     Indication: HIGH DENSITY LIPOPROTEIN ABNORMAL
     Dosage: 5 MG, 1 IN 1 D
     Dates: start: 20090801

REACTIONS (6)
  - TYPE IV HYPERSENSITIVITY REACTION [None]
  - CONDITION AGGRAVATED [None]
  - PERIPHERAL SENSORIMOTOR NEUROPATHY [None]
  - DRUG INEFFECTIVE [None]
  - GAIT DISTURBANCE [None]
  - PARAESTHESIA [None]
